FAERS Safety Report 25649310 (Version 1)
Quarter: 2025Q3

REPORT INFORMATION
  Report Type: Spontaneous
  Country: CN (occurrence: CN)
  Receive Date: 20250806
  Receipt Date: 20250806
  Transmission Date: 20251021
  Serious: Yes (Other)
  Sender: COHERUS
  Company Number: CN-SHANGHAI JUNSHI BIOSCIENCES CO., LTD.-CN2025015112

PATIENT

DRUGS (7)
  1. TORIPALIMAB [Suspect]
     Active Substance: TORIPALIMAB
     Indication: Lung squamous cell carcinoma metastatic
     Dosage: 240 MG, EVERY 21 DAYS, D1, CYCLE 1-2
     Route: 041
  2. TORIPALIMAB [Suspect]
     Active Substance: TORIPALIMAB
     Dosage: 240 MG, EVERY 21 DAYS, D1
     Route: 041
     Dates: start: 20250722, end: 20250722
  3. NEDAPLATIN [Suspect]
     Active Substance: NEDAPLATIN
     Indication: Lung squamous cell carcinoma metastatic
     Dosage: 60 MG, EVERY 21 DAYS, D1-D2
     Route: 041
     Dates: start: 20250722, end: 20250722
  4. PACLITAXEL [Suspect]
     Active Substance: PACLITAXEL
     Indication: Lung squamous cell carcinoma metastatic
     Dosage: 300 MG, EVERY 21 DAYS, D1, CYCLE 1-2
     Route: 041
  5. PACLITAXEL [Suspect]
     Active Substance: PACLITAXEL
     Dosage: 300 MG, EVERY 21 DAYS, D1
     Route: 041
     Dates: start: 20250722, end: 20250722
  6. SODIUM CHLORIDE [Concomitant]
     Active Substance: SODIUM CHLORIDE
     Indication: Medication dilution
     Route: 041
     Dates: start: 20250722, end: 20250722
  7. SODIUM CHLORIDE [Concomitant]
     Active Substance: SODIUM CHLORIDE
     Indication: Medication dilution
     Route: 041
     Dates: start: 20250722, end: 20250722

REACTIONS (2)
  - Anaphylactic shock [Recovered/Resolved]
  - Oxygen saturation decreased [Recovered/Resolved]

NARRATIVE: CASE EVENT DATE: 20250722
